FAERS Safety Report 7957847 (Version 4)
Quarter: 2012Q4

REPORT INFORMATION
  Report Type: Spontaneous
  Country: JP (occurrence: None)
  Receive Date: 20110504
  Receipt Date: 20120529
  Transmission Date: 20130627
  Serious: Yes (Hospitalization)
  Sender: FDA-Public Use
  Company Number: JP-2011-10669

PATIENT
  Age: 85 Year
  Sex: Male
  Weight: 36 kg

DRUGS (10)
  1. SAMSCA [Suspect]
     Indication: CARDIAC FAILURE CONGESTIVE
     Dosage: 7.5 MG MILLIGRAM(S), QD, ORAL, 15 MG MILLIGRAM(S), QD, ORAL
     Route: 048
     Dates: start: 20110404, end: 20110410
  2. SAMSCA [Suspect]
     Indication: CARDIAC FAILURE CONGESTIVE
     Dosage: 7.5 MG MILLIGRAM(S), QD, ORAL, 15 MG MILLIGRAM(S), QD, ORAL
     Route: 048
     Dates: start: 20110331, end: 20110403
  3. MUCODYNE (CARBOCISTEINE) [Concomitant]
  4. SOLOMUCO (AMBROXOL HYDROCHLORIDE) [Concomitant]
  5. PERINDOPRIL ERBUMINE [Concomitant]
  6. TORSEMIDE [Concomitant]
  7. RABEPRAZOLE SODIUM [Concomitant]
  8. PAXIL [Concomitant]
  9. SELARA (EPLERENONE) [Concomitant]
  10. LASIX [Concomitant]

REACTIONS (5)
  - Toxic skin eruption [None]
  - Skin exfoliation [None]
  - Blood potassium abnormal [None]
  - Blood urea abnormal [None]
  - Blood creatinine abnormal [None]
